FAERS Safety Report 8195397-3 (Version None)
Quarter: 2012Q1

REPORT INFORMATION
  Report Type: 
  Country: None (occurrence: None)
  Receive Date: 20120308
  Receipt Date: 20120302
  Transmission Date: 20120608
  Serious: Yes (Hospitalization)
  Sender: FDA-Public Use
  Company Number: PHHY2012IT018923

PATIENT
  Sex: Male

DRUGS (1)
  1. ZOMETA [Suspect]
     Indication: MULTIPLE MYELOMA
     Dosage: 4 MG, CYCLIC
     Route: 042
     Dates: start: 20020101, end: 20090202

REACTIONS (3)
  - SWELLING FACE [None]
  - FISTULA DISCHARGE [None]
  - BONE FISTULA [None]
